FAERS Safety Report 10047594 (Version 1)
Quarter: 2014Q1

REPORT INFORMATION
  Report Type: Spontaneous
  Country: US (occurrence: None)
  Receive Date: 20140327
  Receipt Date: 20140327
  Transmission Date: 20141002
  Serious: Yes (Hospitalization, Other)
  Sender: FDA-Public Use
  Company Number: SYM-2014-18951

PATIENT
  Age: 27 Year
  Sex: Male

DRUGS (1)
  1. XENAZINE [Suspect]
     Indication: TARDIVE DYSKINESIA
     Dosage: 112.5 MG, 9 IN 1 D, ORAL
     Route: 048
     Dates: start: 201108

REACTIONS (2)
  - Hospitalisation [None]
  - Prescribed overdose [None]
